FAERS Safety Report 4903373-6 (Version None)
Quarter: 2006Q1

REPORT INFORMATION
  Report Type: 
  Country: None (occurrence: None)
  Receive Date: 20060206
  Receipt Date: 20060206
  Transmission Date: 20060701
  Serious: Yes (Hospitalization)
  Sender: FDA-Public Use
  Company Number: None

PATIENT

DRUGS (12)
  1. HUMIRA [Suspect]
     Dosage: ONCE EVERY WEEK
  2. VIT. A [Concomitant]
  3. VIT D [Concomitant]
  4. VIT E [Concomitant]
  5. M.V.I. [Concomitant]
  6. CALCIUM GLUCONATE [Concomitant]
  7. REGLAN [Concomitant]
  8. FOLIC ACID [Concomitant]
  9. NIFEREX [Concomitant]
  10. PROTONIX [Concomitant]
  11. MIACALCIN [Concomitant]
  12. FLAGYL [Concomitant]

REACTIONS (4)
  - ERYTHEMA [None]
  - OEDEMA PERIPHERAL [None]
  - PYREXIA [None]
  - SYSTEMIC LUPUS ERYTHEMATOSUS [None]
